FAERS Safety Report 6344417-7 (Version None)
Quarter: 2009Q3

REPORT INFORMATION
  Report Type: 
  Country: None (occurrence: None)
  Receive Date: 20090908
  Receipt Date: 20090901
  Transmission Date: 20100115
  Serious: Yes (Other)
  Sender: FDA-Public Use
  Company Number: PHFR2007GB03694

PATIENT
  Sex: Female

DRUGS (5)
  1. CLOZARIL [Suspect]
     Indication: SCHIZOPHRENIA
     Dosage: 250 MG, QD
     Route: 048
     Dates: start: 20051024
  2. CLOZARIL [Suspect]
     Dosage: 350MG / DAY
     Route: 048
  3. CLOZARIL [Suspect]
     Dosage: 300 MG / DAY
     Route: 048
  4. CAFFEINE CITRATE [Suspect]
     Dosage: 2-3 L / DAY
     Route: 048
  5. EPILIM [Concomitant]
     Indication: AFFECTIVE DISORDER
     Dosage: 1000 MG / DAY
     Route: 048
     Dates: start: 20060101

REACTIONS (6)
  - ANTIPSYCHOTIC DRUG LEVEL INCREASED [None]
  - ANXIETY [None]
  - DYSPNOEA [None]
  - OBESITY [None]
  - PALPITATIONS [None]
  - TACHYCARDIA [None]
